FAERS Safety Report 11773142 (Version 1)
Quarter: 2015Q4

REPORT INFORMATION
  Report Type: Spontaneous
  Country: US (occurrence: US)
  Receive Date: 20151124
  Receipt Date: 20151124
  Transmission Date: 20160304
  Serious: No
  Sender: FDA-Public Use
  Company Number: US-TEVA-610620USA

PATIENT
  Age: 42 Year
  Sex: Male

DRUGS (1)
  1. PROVIGIL [Suspect]
     Active Substance: MODAFINIL
     Indication: HYPERSOMNIA
     Route: 065

REACTIONS (2)
  - Drug effect decreased [Unknown]
  - Off label use [Unknown]
